FAERS Safety Report 4945104-X (Version None)
Quarter: 2006Q1

REPORT INFORMATION
  Report Type: 
  Country: None (occurrence: None)
  Receive Date: 20060314
  Receipt Date: 20060314
  Transmission Date: 20060701
  Serious: Yes (Other)
  Sender: FDA-Public Use
  Company Number: None

PATIENT
  Sex: Female
  Weight: 50.8029 kg

DRUGS (1)
  1. TOPAMAX [Suspect]
     Indication: EPILEPSY
     Dosage: 100 MG IN AM PO 200 MG AT HS PO
     Route: 048
     Dates: start: 20050310, end: 20060314

REACTIONS (3)
  - EDUCATIONAL PROBLEM [None]
  - INTELLIGENCE TEST ABNORMAL [None]
  - MEMORY IMPAIRMENT [None]
